FAERS Safety Report 22175578 (Version 1)
Quarter: 2023Q2

REPORT INFORMATION
  Report Type: Spontaneous
  Country: US (occurrence: None)
  Receive Date: 20230404
  Receipt Date: 20230404
  Transmission Date: 20230721
  Serious: Yes (Disabling)
  Sender: FDA-Public Use
  Company Number: None

PATIENT
  Age: 73 Year
  Sex: Male
  Weight: 101.25 kg

DRUGS (2)
  1. CLINDAMYCIN PHOSPHATE [Suspect]
     Active Substance: CLINDAMYCIN PHOSPHATE
     Indication: Psoriasis
     Dosage: 160 ML BOTTLE TWICE A DAY TOPICAL?
     Route: 061
     Dates: start: 20230331, end: 20230403
  2. CLINDAMYCIN PHOSPHATE [Suspect]
     Active Substance: CLINDAMYCIN PHOSPHATE
     Indication: Hidradenitis

REACTIONS (5)
  - Product container seal issue [None]
  - Product odour abnormal [None]
  - Psoriasis [None]
  - Hidradenitis [None]
  - Disease recurrence [None]

NARRATIVE: CASE EVENT DATE: 20230331
